FAERS Safety Report 18937189 (Version 1)
Quarter: 2021Q1

REPORT INFORMATION
  Report Type: Spontaneous
  Country: DK (occurrence: DK)
  Receive Date: 20210224
  Receipt Date: 20210224
  Transmission Date: 20210420
  Serious: Yes (Death, Hospitalization, Other)
  Sender: FDA-Public Use
  Company Number: DK-ELI_LILLY_AND_COMPANY-DK202102009258

PATIENT
  Sex: Male

DRUGS (9)
  1. FUROSEMIDE. [Concomitant]
     Active Substance: FUROSEMIDE
     Dosage: UNK, UNKNOWN
  2. ARIPIPRAZOLE. [Suspect]
     Active Substance: ARIPIPRAZOLE
     Indication: MENTAL DISORDER
     Dosage: UNK UNK, UNKNOWN
  3. IBANDRONIC ACID. [Concomitant]
     Active Substance: IBANDRONIC ACID
     Dosage: UNK, UNKNOWN
  4. LEUPRORELIN [Suspect]
     Active Substance: LEUPROLIDE ACETATE
     Indication: HYPERSEXUALITY
     Dosage: UNK, UNKNOWN
  5. ZUCLOPENTHIXOL [Suspect]
     Active Substance: ZUCLOPENTHIXOL
     Indication: MENTAL DISORDER
     Dosage: UNK, UNKNOWN
  6. OLANZAPINE. [Suspect]
     Active Substance: OLANZAPINE
     Indication: MENTAL DISORDER
     Dosage: UNK UNK, UNKNOWN
     Route: 065
  7. ORPHENADRINE [Suspect]
     Active Substance: ORPHENADRINE
     Indication: MENTAL DISORDER
     Route: 065
  8. CLONAZEPAM. [Suspect]
     Active Substance: CLONAZEPAM
     Indication: MENTAL DISORDER
     Dosage: UNK UNK, UNKNOWN
  9. CYPROTERONE ACETATE [Suspect]
     Active Substance: CYPROTERONE ACETATE
     Indication: HYPERSEXUALITY
     Dosage: UNK, UNKNOWN

REACTIONS (7)
  - Tremor [Unknown]
  - Femur fracture [Fatal]
  - Sepsis [Fatal]
  - Rhabdomyolysis [Unknown]
  - Depression [Unknown]
  - Hypogonadism [Unknown]
  - Condition aggravated [Unknown]
